FAERS Safety Report 20706419 (Version 1)
Quarter: 2022Q2

REPORT INFORMATION
  Report Type: Spontaneous
  Country: US (occurrence: None)
  Receive Date: 20220413
  Receipt Date: 20220413
  Transmission Date: 20220721
  Serious: No
  Sender: FDA-Public Use
  Company Number: None

PATIENT
  Age: 21 Year
  Sex: Female
  Weight: 56.25 kg

DRUGS (3)
  1. MONTELUKAST SODIUM [Suspect]
     Active Substance: MONTELUKAST SODIUM
     Indication: Multiple allergies
     Dosage: OTHER QUANTITY : 1 TABLET(S);?FREQUENCY : DAILY;?
     Route: 048
     Dates: start: 20220305, end: 20220405
  2. Benadryl [Concomitant]
  3. Zyrtec PRN [Concomitant]

REACTIONS (6)
  - Depressed mood [None]
  - Psychiatric symptom [None]
  - Crying [None]
  - Product use issue [None]
  - Apathy [None]
  - Educational problem [None]

NARRATIVE: CASE EVENT DATE: 20220405
